FAERS Safety Report 9705883 (Version 2)
Quarter: 2013Q4

REPORT INFORMATION
  Report Type: Spontaneous
  Country: GB (occurrence: GB)
  Receive Date: 20131122
  Receipt Date: 20131122
  Transmission Date: 20140711
  Serious: Yes (Hospitalization)
  Sender: FDA-Public Use
  Company Number: GB-WATSON-2013-20301

PATIENT
  Age: 64 Year
  Sex: Male

DRUGS (5)
  1. TRIMETHOPRIM-SULFAMETHOXAZOLE (UNKNOWN) [Suspect]
     Indication: ANTIFUNGAL PROPHYLAXIS
     Dosage: EVERY MONDAY, WEDNESDAY AND FRIDAY
     Route: 048
     Dates: end: 20130218
  2. OMEPRAZOLE [Concomitant]
     Indication: PRODUCT USED FOR UNKNOWN INDICATION
     Dosage: UNKNOWN
     Route: 065
     Dates: start: 20121219, end: 20130218
  3. LEVETIRACETAM [Concomitant]
     Indication: PRODUCT USED FOR UNKNOWN INDICATION
     Dosage: UNKNOWN
     Route: 065
     Dates: start: 201206
  4. DEXAMETASONE [Concomitant]
     Indication: PRODUCT USED FOR UNKNOWN INDICATION
     Dosage: UNKNOWN
     Route: 065
     Dates: start: 20121219, end: 20130218
  5. TEMOZOLOMIDE [Concomitant]
     Indication: BRAIN NEOPLASM
     Dosage: UNKNOWN
     Route: 065

REACTIONS (9)
  - Stevens-Johnson syndrome [Recovering/Resolving]
  - Rash erythematous [Unknown]
  - Oropharyngeal pain [Unknown]
  - Stomatitis [Unknown]
  - Oral mucosal erythema [Unknown]
  - Eye pain [Unknown]
  - Eye discharge [Unknown]
  - Dry skin [Unknown]
  - Skin exfoliation [Unknown]
